FAERS Safety Report 25439957 (Version 2)
Quarter: 2025Q3

REPORT INFORMATION
  Report Type: Spontaneous
  Country: GB (occurrence: GB)
  Receive Date: 20250616
  Receipt Date: 20250722
  Transmission Date: 20251020
  Serious: Yes (Hospitalization, Other)
  Sender: MYLAN
  Company Number: GB-MYLANLABS-2024M1109644

PATIENT
  Age: 36 Year
  Sex: Male
  Weight: 173.8 kg

DRUGS (3)
  1. CLOZARIL [Suspect]
     Active Substance: CLOZAPINE
     Indication: Schizophrenia
     Dosage: UNK, BID (50MG OM, 300MG ON)
     Dates: start: 20150224, end: 20250527
  2. CLOZARIL [Suspect]
     Active Substance: CLOZAPINE
  3. AMISULPRIDE [Concomitant]
     Active Substance: AMISULPRIDE
     Indication: Schizophrenia
     Dosage: 50 MILLIGRAM, QD
     Dates: start: 20220428, end: 20250527

REACTIONS (6)
  - Umbilical hernia [Recovered/Resolved]
  - Small intestinal obstruction [Unknown]
  - Schizophrenia [Unknown]
  - Postoperative ileus [Unknown]
  - Differential white blood cell count abnormal [Recovered/Resolved]
  - Leukocytosis [Recovered/Resolved]

NARRATIVE: CASE EVENT DATE: 20250501
